FAERS Safety Report 5708311-4 (Version None)
Quarter: 2008Q2

REPORT INFORMATION
  Report Type: 
  Country: None (occurrence: None)
  Receive Date: 20080414
  Receipt Date: 20080228
  Transmission Date: 20081010
  Serious: Yes (Other)
  Sender: FDA-Public Use
  Company Number: 2008AL002054

PATIENT
  Age: 68 Year
  Sex: Female

DRUGS (3)
  1. DICLONFENAC SODIUM DELAYED-RELEASE [Suspect]
     Indication: ARTHRITIS
     Dosage: 50 MG; Q8H; PO
     Route: 048
     Dates: start: 20070718, end: 20070921
  2. PARACETAMOL [Concomitant]
  3. FLOXACILLIN SODIUM [Concomitant]

REACTIONS (2)
  - HYPERTENSION [None]
  - NEPHRITIC SYNDROME [None]
